FAERS Safety Report 7512732-7 (Version None)
Quarter: 2011Q2

REPORT INFORMATION
  Report Type: 
  Country: None (occurrence: None)
  Receive Date: 20110531
  Receipt Date: 20110517
  Transmission Date: 20111010
  Serious: Yes (Hospitalization)
  Sender: FDA-Public Use
  Company Number: A0779017A

PATIENT
  Age: 38 Year
  Sex: Female

DRUGS (7)
  1. AVANDIA [Suspect]
     Dosage: 8MG PER DAY
     Route: 048
     Dates: start: 20000701
  2. AVANDAMET [Suspect]
     Route: 065
  3. GLUCOPHAGE [Concomitant]
  4. MEVACOR [Concomitant]
  5. LOTENSIN [Concomitant]
  6. MULTI-VITAMIN [Concomitant]
  7. AVANDARYL [Suspect]
     Route: 065

REACTIONS (2)
  - ACUTE MYOCARDIAL INFARCTION [None]
  - CARDIAC DISORDER [None]
